FAERS Safety Report 4853773-8 (Version None)
Quarter: 2005Q4

REPORT INFORMATION
  Report Type: 
  Country: None (occurrence: None)
  Receive Date: 20051212
  Receipt Date: 20051128
  Transmission Date: 20060501
  Serious: Yes (Death, Hospitalization, Other)
  Sender: FDA-Public Use
  Company Number: 2005150902

PATIENT
  Age: 70 Year
  Sex: Male

DRUGS (8)
  1. TIKOSYN [Suspect]
     Indication: ATRIAL FIBRILLATION
     Dosage: 0.5 MG (0.25 MG, 2 IN 1 D), ORAL
     Route: 048
     Dates: start: 20040101, end: 20050430
  2. LISINOPRIL [Concomitant]
  3. LASIX [Concomitant]
  4. COUMADIN [Concomitant]
  5. LOTENSIN [Concomitant]
  6. NORVASC [Concomitant]
  7. DIGOXIN [Concomitant]
  8. LIPITOR [Concomitant]

REACTIONS (1)
  - LARGE INTESTINE PERFORATION [None]
